FAERS Safety Report 22293073 (Version 1)
Quarter: 2023Q2

REPORT INFORMATION
  Report Type: Spontaneous
  Country: US (occurrence: US)
  Receive Date: 20230508
  Receipt Date: 20230508
  Transmission Date: 20230722
  Serious: No
  Sender: FDA-Public Use
  Company Number: US-BRISTOL-MYERS SQUIBB COMPANY-2023-063842

PATIENT
  Sex: Female

DRUGS (1)
  1. SOTYKTU [Suspect]
     Active Substance: DEUCRAVACITINIB
     Indication: Psoriatic arthropathy
     Dosage: DOSE : UNAVAILABLE;     FREQ : DAILY
     Route: 048
     Dates: start: 2023

REACTIONS (4)
  - Limb injury [Unknown]
  - Stomatitis [Unknown]
  - Lip swelling [Unknown]
  - Intentional product use issue [Unknown]

NARRATIVE: CASE EVENT DATE: 20230101
